FAERS Safety Report 9282836 (Version 1)
Quarter: 2013Q2

REPORT INFORMATION
  Report Type: Spontaneous
  Country: US (occurrence: US)
  Receive Date: 20130510
  Receipt Date: 20130510
  Transmission Date: 20140414
  Serious: Yes (Hospitalization)
  Sender: FDA-Public Use
  Company Number: PHHY2013US045052

PATIENT
  Age: 69 Year
  Sex: Male

DRUGS (4)
  1. NILOTINIB [Suspect]
     Indication: CHRONIC MYELOID LEUKAEMIA
     Dosage: 300 MG, BID
  2. SIMVASTATIN [Concomitant]
  3. ASPIRIN [Concomitant]
  4. ENALAPRIL [Concomitant]

REACTIONS (7)
  - Pancreatitis acute [Unknown]
  - Abdominal pain [Recovering/Resolving]
  - Lipase increased [Recovered/Resolved]
  - Blood lactate dehydrogenase abnormal [Unknown]
  - White blood cell count increased [Unknown]
  - Splenomegaly [Unknown]
  - Blood bilirubin increased [Unknown]
